FAERS Safety Report 8304088-7 (Version None)
Quarter: 2012Q2

REPORT INFORMATION
  Report Type: 
  Country: None (occurrence: None)
  Receive Date: 20120418
  Receipt Date: 20120403
  Transmission Date: 20120825
  Serious: Yes (Death)
  Sender: FDA-Public Use
  Company Number: 2012-159

PATIENT
  Age: 83 Year
  Sex: Female

DRUGS (2)
  1. PRIALT [Suspect]
     Indication: PAIN
     Dosage: UNK UG, ONCE/HOUR, INTRATHECAL; UNK MCG, ONCE/HOUR, INTRATHECAL
     Route: 037
  2. MORPHINE [Suspect]
     Indication: PAIN
     Dosage: ONCE/HOUR, INTRATHECAL
     Route: 037

REACTIONS (1)
  - DEATH [None]
